FAERS Safety Report 4294338-9 (Version None)
Quarter: 2004Q1

REPORT INFORMATION
  Report Type: 
  Country: None (occurrence: None)
  Receive Date: 20040212
  Receipt Date: 20040212
  Transmission Date: 20041129
  Serious: No
  Sender: FDA-Public Use
  Company Number: None

PATIENT
  Sex: Female

DRUGS (1)
  1. LAMOTRIGINE [Suspect]
     Indication: BIPOLAR DISORDER
     Dosage: 1 1/2 TABS BID PO
     Route: 048

REACTIONS (4)
  - LYMPHADENOPATHY [None]
  - NECK PAIN [None]
  - PYREXIA [None]
  - RASH [None]
